FAERS Safety Report 5646002-9 (Version None)
Quarter: 2008Q1

REPORT INFORMATION
  Report Type: 
  Country: None (occurrence: None)
  Receive Date: 20080229
  Receipt Date: 20080219
  Transmission Date: 20080703
  Serious: Yes (Other)
  Sender: FDA-Public Use
  Company Number: US-PFIZER INC-2008015743

PATIENT
  Sex: Female
  Weight: 88.636 kg

DRUGS (8)
  1. CELEBREX [Suspect]
     Indication: FALL
     Dates: start: 20080201, end: 20080218
  2. CELEBREX [Suspect]
     Indication: ARTHRITIS
  3. GABAPENTIN [Concomitant]
  4. MESALAMINE [Concomitant]
  5. LAMICTAL [Concomitant]
  6. PANTOPRAZOLE [Concomitant]
  7. FOLIC ACID [Concomitant]
  8. DARVOCET [Concomitant]

REACTIONS (2)
  - GAIT DISTURBANCE [None]
  - OEDEMA PERIPHERAL [None]
